FAERS Safety Report 21631010 (Version 2)
Quarter: 2025Q2

REPORT INFORMATION
  Report Type: Spontaneous
  Country: BE (occurrence: BE)
  Receive Date: 20221123
  Receipt Date: 20250614
  Transmission Date: 20250717
  Serious: Yes (Hospitalization, Other)
  Sender: AUROBINDO
  Company Number: BE-DSJP-DSE-2022-139980

PATIENT
  Age: 75 Year
  Sex: Male

DRUGS (13)
  1. OLMESARTAN [Suspect]
     Active Substance: OLMESARTAN
     Indication: Hypertension
     Route: 065
  2. AMLODIPINE [Concomitant]
     Active Substance: AMLODIPINE BESYLATE
     Indication: Hypertension
     Route: 065
  3. BISOPROLOL [Concomitant]
     Active Substance: BISOPROLOL
     Indication: Hypertension
     Route: 065
  4. ERYTHROPOIETIN [Concomitant]
     Active Substance: ERYTHROPOIETIN
     Indication: Product used for unknown indication
     Route: 065
  5. GLIQUIDONE [Concomitant]
     Active Substance: GLIQUIDONE
     Indication: Product used for unknown indication
     Dosage: 45 MILLIGRAM, ONCE A DAY
     Route: 065
  6. GLECAPREVIR\PIBRENTASVIR [Concomitant]
     Active Substance: GLECAPREVIR\PIBRENTASVIR
     Indication: Chronic hepatitis C
     Route: 065
  7. GABAPENTIN [Concomitant]
     Active Substance: GABAPENTIN
     Indication: Product used for unknown indication
     Dosage: 100 MILLIGRAM, ONCE A DAY
     Route: 065
  8. PHOSPHORUS [Concomitant]
     Active Substance: PHOSPHORUS
     Indication: Product used for unknown indication
     Route: 065
  9. IRON [Concomitant]
     Active Substance: IRON
     Indication: Product used for unknown indication
     Route: 065
  10. LORAZEPAM [Concomitant]
     Active Substance: LORAZEPAM
     Indication: Product used for unknown indication
     Dosage: 2.5 MILLIGRAM, ONCE A DAY
     Route: 065
  11. TRAZODONE [Concomitant]
     Active Substance: TRAZODONE HYDROCHLORIDE
     Indication: Product used for unknown indication
     Dosage: 50 MILLIGRAM, ONCE A DAY
     Route: 065
  12. VITAMIN D [Concomitant]
     Active Substance: VITAMIN D NOS
     Indication: Product used for unknown indication
     Route: 065
  13. VITAMIN B [Concomitant]
     Active Substance: VITAMIN B
     Indication: Product used for unknown indication
     Route: 065

REACTIONS (1)
  - Pemphigoid [Recovered/Resolved]
